FAERS Safety Report 12856600 (Version 1)
Quarter: 2016Q4

REPORT INFORMATION
  Report Type: Spontaneous
  Country: TR (occurrence: TR)
  Receive Date: 20161018
  Receipt Date: 20161018
  Transmission Date: 20170207
  Serious: Yes (Other)
  Sender: FDA-Public Use
  Company Number: TR-ALVOGEN-2016-ALVOGEN-029292

PATIENT
  Age: 13 Year
  Sex: Female

DRUGS (3)
  1. METHYLPHENIDATE HYDROCHLORIDE. [Suspect]
     Active Substance: METHYLPHENIDATE HYDROCHLORIDE
     Indication: ANXIETY DISORDER
  2. METHYLPHENIDATE HYDROCHLORIDE. [Suspect]
     Active Substance: METHYLPHENIDATE HYDROCHLORIDE
     Indication: OBSESSIVE-COMPULSIVE DISORDER
  3. METHYLPHENIDATE HYDROCHLORIDE. [Suspect]
     Active Substance: METHYLPHENIDATE HYDROCHLORIDE
     Indication: ATTENTION DEFICIT/HYPERACTIVITY DISORDER
     Dosage: IR MPH 20MG/DAY AT MORNING. ?OROS MPH 36 MG.

REACTIONS (7)
  - Iron deficiency anaemia [Unknown]
  - Headache [Unknown]
  - Muscle spasms [Recovering/Resolving]
  - Withdrawal syndrome [Recovering/Resolving]
  - Drug dose omission [Unknown]
  - Nausea [Unknown]
  - Decreased appetite [Unknown]
